FAERS Safety Report 19417409 (Version 2)
Quarter: 2021Q3

REPORT INFORMATION
  Report Type: Report from Study
  Country: None (occurrence: US)
  Receive Date: 20210614
  Receipt Date: 20210804
  Transmission Date: 20211014
  Serious: Yes (Hospitalization, Other)
  Sender: FDA-Public Use
  Company Number: US-ABBVIE-21K-163-3947622-00

PATIENT
  Sex: Female
  Weight: 64 kg

DRUGS (1)
  1. RINVOQ [Suspect]
     Active Substance: UPADACITINIB
     Indication: RHEUMATOID ARTHRITIS
     Dosage: YEAR OR MORE
     Route: 048

REACTIONS (5)
  - Tremor [Unknown]
  - Post procedural swelling [Recovering/Resolving]
  - Asthenia [Unknown]
  - Influenza like illness [Unknown]
  - Foot operation [Unknown]
